FAERS Safety Report 10397514 (Version 1)
Quarter: 2014Q1

REPORT INFORMATION
  Report Type: Spontaneous
  Country: US (occurrence: None)
  Receive Date: 20130815
  Receipt Date: 20130815
  Transmission Date: 20141002
  Serious: Yes (Other)
  Sender: FDA-Public Use
  Company Number: ADR-2012-01534

PATIENT
  Sex: Male

DRUGS (2)
  1. LIORESAL INTRATHECAL (BACLOFEN INJECTION) 500 MCG/ML [Suspect]
     Indication: MUSCLE SPASTICITY
     Dosage: 55 MCG/DAY
  2. LIORESAL INTRATHECAL (BACLOFEN INJECTION) 500 MCG/ML [Suspect]
     Indication: MULTIPLE SCLEROSIS
     Dosage: 55 MCG/DAY

REACTIONS (4)
  - Asthenia [None]
  - No therapeutic response [None]
  - Muscle spasticity [None]
  - Muscle spasms [None]
